FAERS Safety Report 7550369-4 (Version None)
Quarter: 2011Q2

REPORT INFORMATION
  Report Type: 
  Country: None (occurrence: None)
  Receive Date: 20110615
  Receipt Date: 20110607
  Transmission Date: 20111010
  Serious: Yes (Other)
  Sender: FDA-Public Use
  Company Number: US-ROCHE-743266

PATIENT
  Sex: Male
  Weight: 83.9 kg

DRUGS (3)
  1. ACCUTANE [Suspect]
     Indication: ACNE
     Route: 048
     Dates: start: 20000901, end: 20010601
  2. CLINDAMYCIN [Concomitant]
  3. TYLENOL-500 [Concomitant]

REACTIONS (4)
  - ANAL FISTULA [None]
  - GASTROINTESTINAL INJURY [None]
  - INFLAMMATORY BOWEL DISEASE [None]
  - CROHN'S DISEASE [None]
